FAERS Safety Report 5297693-6 (Version None)
Quarter: 2007Q2

REPORT INFORMATION
  Report Type: 
  Country: None (occurrence: None)
  Receive Date: 20070409
  Receipt Date: 20070321
  Transmission Date: 20071010
  Serious: Yes (Hospitalization)
  Sender: FDA-Public Use
  Company Number: E3810-00770-SPO-IN

PATIENT
  Age: 72 Year
  Sex: Male

DRUGS (4)
  1. RABEPRAZOLE SODIUM [Suspect]
     Indication: GASTROOESOPHAGEAL REFLUX DISEASE
     Dosage: 20 MG, ORAL
     Route: 048
     Dates: start: 20070219, end: 20070302
  2. T TAPIZ [Concomitant]
  3. T PANLIPASE [Concomitant]
  4. C BECOSULE (BECOSULES CAPSULE) [Concomitant]

REACTIONS (3)
  - ACCELERATED HYPERTENSION [None]
  - DIZZINESS [None]
  - HEMIPARESIS [None]
